FAERS Safety Report 17073308 (Version 2)
Quarter: 2019Q4

REPORT INFORMATION
  Report Type: Report from Study
  Country: None (occurrence: CO)
  Receive Date: 20191126
  Receipt Date: 20191212
  Transmission Date: 20200122
  Serious: Yes (Hospitalization)
  Sender: FDA-Public Use
  Company Number: CO-ABBVIE-19K-036-3169135-00

PATIENT
  Age: 16 Year
  Sex: Female
  Weight: 33 kg

DRUGS (1)
  1. HUMIRA [Suspect]
     Active Substance: ADALIMUMAB
     Indication: CROHN^S DISEASE
     Route: 058
     Dates: start: 20180914, end: 20191101

REACTIONS (2)
  - Crohn^s disease [Not Recovered/Not Resolved]
  - Large intestinal ulcer [Not Recovered/Not Resolved]

NARRATIVE: CASE EVENT DATE: 20191114
